FAERS Safety Report 4652953-4 (Version None)
Quarter: 2005Q2

REPORT INFORMATION
  Report Type: 
  Country: None (occurrence: None)
  Receive Date: 20050503
  Receipt Date: 20050419
  Transmission Date: 20051028
  Serious: Yes (Hospitalization)
  Sender: FDA-Public Use
  Company Number: 2005BI003280

PATIENT
  Age: 52 Year
  Sex: Female
  Weight: 74.8435 kg

DRUGS (8)
  1. AVONEX [Suspect]
     Indication: MULTIPLE SCLEROSIS
     Dosage: 30 UG;QW;IM
     Route: 030
     Dates: start: 19960101, end: 20040101
  2. AVONEX [Suspect]
     Indication: MULTIPLE SCLEROSIS
     Dosage: 30 UG;QW;IM
     Route: 030
     Dates: start: 20040101, end: 20050127
  3. PRINZIDE [Concomitant]
  4. PREVACID [Concomitant]
  5. DETROL [Concomitant]
  6. MULTIVITAMIN WITH IRON [Concomitant]
  7. CITRACAL [Concomitant]
  8. SUPER B COMPLEX [Concomitant]

REACTIONS (8)
  - ABDOMINAL ABSCESS [None]
  - ANASTOMOTIC LEAK [None]
  - ASCITES [None]
  - ASTHENIA [None]
  - CONDITION AGGRAVATED [None]
  - INTESTINAL PERFORATION [None]
  - MULTIPLE SCLEROSIS [None]
  - PERITONITIS [None]
